FAERS Safety Report 8291302 (Version 3)
Quarter: 2016Q4

REPORT INFORMATION
  Report Type: Report from Study
  Country: DE (occurrence: DE)
  Receive Date: 20111214
  Receipt Date: 20161215
  Transmission Date: 20170207
  Serious: Yes (Death, Hospitalization)
  Sender: FDA-Public Use
  Company Number: DE-ROCHE-1017606

PATIENT
  Age: 65 Year
  Sex: Male
  Weight: 80 kg

DRUGS (7)
  1. BENDAMUSTINE [Suspect]
     Active Substance: BENDAMUSTINE
     Indication: PRODUCT USED FOR UNKNOWN INDICATION
     Route: 042
     Dates: start: 20100311, end: 20100730
  2. RITUXIMAB [Suspect]
     Active Substance: RITUXIMAB
     Indication: CHRONIC LYMPHOCYTIC LEUKAEMIA
     Route: 042
     Dates: start: 20100311, end: 20100730
  3. RITUXIMAB [Suspect]
     Active Substance: RITUXIMAB
     Route: 042
     Dates: start: 20110307, end: 20110419
  4. DOXORUBICIN [Suspect]
     Active Substance: DOXORUBICIN
     Indication: CHRONIC LYMPHOCYTIC LEUKAEMIA
     Route: 042
     Dates: start: 20110419
  5. VINCRISTIN [Suspect]
     Active Substance: VINCRISTINE
     Indication: CHRONIC LYMPHOCYTIC LEUKAEMIA
     Route: 042
     Dates: start: 20110419
  6. CYCLOPHOSPHAMID [Suspect]
     Active Substance: CYCLOPHOSPHAMIDE
     Indication: CHRONIC LYMPHOCYTIC LEUKAEMIA
     Route: 042
     Dates: start: 20110419
  7. PREDNISOLON [Suspect]
     Active Substance: PREDNISOLONE
     Indication: CHRONIC LYMPHOCYTIC LEUKAEMIA
     Route: 048
     Dates: start: 20110419, end: 20110423

REACTIONS (4)
  - Sepsis [Fatal]
  - Pneumonia mycoplasmal [Recovered/Resolved]
  - Erysipelas [Unknown]
  - Pancytopenia [Unknown]

NARRATIVE: CASE EVENT DATE: 20100610
